FAERS Safety Report 8160246-6 (Version None)
Quarter: 2012Q1

REPORT INFORMATION
  Report Type: 
  Country: None (occurrence: None)
  Receive Date: 20120223
  Receipt Date: 20120210
  Transmission Date: 20120608
  Serious: Yes (Hospitalization)
  Sender: FDA-Public Use
  Company Number: FR-TEVA-306029ISR

PATIENT
  Sex: Male
  Weight: 75.6 kg

DRUGS (21)
  1. ATENOLOL [Concomitant]
     Indication: BRADYCARDIA
     Dates: start: 20100315
  2. CLODRONIC ACID [Concomitant]
     Indication: PROPHYLAXIS
     Dates: start: 20101122
  3. AMLODIPINE [Concomitant]
     Indication: ANXIETY
     Dates: start: 20090810
  4. POTASSIUM CHLORIDE [Concomitant]
     Indication: HYPOKALAEMIA
     Dates: start: 20090814
  5. AMIODARONE HCL [Concomitant]
     Indication: ATRIAL FIBRILLATION
     Dates: start: 20090814
  6. LENALIDOMIDE [Suspect]
     Indication: MULTIPLE MYELOMA
     Dosage: 10 MILLIGRAM;
     Route: 048
     Dates: start: 20090901
  7. DEXAMETHASONE [Suspect]
     Indication: MULTIPLE MYELOMA
     Dosage: 20 MILLIGRAM;
     Dates: start: 20090901
  8. DEXAMETHASONE [Suspect]
     Dosage: 20 MILLIGRAM;
     Dates: start: 20110830, end: 20110916
  9. LENALIDOMIDE [Suspect]
     Route: 048
     Dates: start: 20111025
  10. RAMIPRIL [Concomitant]
     Indication: HYPERTENSION
  11. LENALIDOMIDE [Suspect]
     Dosage: 15 MILLIGRAM;
     Route: 048
     Dates: start: 20110830, end: 20110916
  12. PYOSTACINE [Concomitant]
     Indication: SINUSITIS
     Dosage: 4000 ML;
     Route: 048
     Dates: start: 20110909, end: 20110911
  13. ANTITHROMBOTIC AGENTS [Concomitant]
     Indication: THROMBOSIS PROPHYLAXIS
  14. FLUINDIONE [Concomitant]
     Indication: ATRIAL FIBRILLATION
     Dates: start: 20101204
  15. ASPIRIN [Concomitant]
     Indication: ANXIETY
     Dates: start: 20090810
  16. ATORVASTATIN [Concomitant]
     Indication: HYPERCHOLESTEROLAEMIA
     Dates: start: 20090810
  17. DEXAMETHASONE [Suspect]
     Dates: start: 20111025
  18. EPOGEN [Concomitant]
     Indication: ANAEMIA PROPHYLAXIS
     Dates: start: 20110829
  19. PYOSTACINE [Concomitant]
     Dosage: 1 GRAM;
     Route: 048
     Dates: start: 20111020, end: 20111023
  20. DEXAFREE [Concomitant]
     Indication: CATARACT
  21. SIMVASTATIN [Concomitant]
     Indication: HYPERCHOLESTEROLAEMIA
     Dates: start: 20090922

REACTIONS (1)
  - SINUSITIS [None]
